FAERS Safety Report 16297298 (Version 1)
Quarter: 2019Q2

REPORT INFORMATION
  Report Type: Report from Study
  Country: US (occurrence: US)
  Receive Date: 20190510
  Receipt Date: 20190510
  Transmission Date: 20190711
  Serious: Yes (Hospitalization, Other)
  Sender: FDA-Public Use
  Company Number: US-TAKEDA-2019TUS028117

PATIENT
  Age: 48 Year
  Sex: Male
  Weight: 92.9 kg

DRUGS (3)
  1. IXAZOMIB [Suspect]
     Active Substance: IXAZOMIB
     Indication: NON-RENAL CELL CARCINOMA OF KIDNEY
     Dosage: 4 MILLIGRAM, Q2WEEKS
     Route: 048
     Dates: start: 20190418
  2. GEMCITABINE [Suspect]
     Active Substance: GEMCITABINE\GEMCITABINE HYDROCHLORIDE
     Indication: NON-RENAL CELL CARCINOMA OF KIDNEY
     Dosage: 495 MILLIGRAM/SQ. METER, Q2WEEKS
     Route: 042
     Dates: start: 20190418
  3. DOXORUBICIN [Suspect]
     Active Substance: DOXORUBICIN
     Indication: NON-RENAL CELL CARCINOMA OF KIDNEY
     Dosage: 33 MILLIGRAM/SQ. METER, Q2WEEKS
     Route: 042
     Dates: start: 20190418

REACTIONS (2)
  - Acute respiratory failure [Unknown]
  - Dyspnoea [Unknown]

NARRATIVE: CASE EVENT DATE: 20190421
